FAERS Safety Report 9994092 (Version 1)
Quarter: 2014Q1

REPORT INFORMATION
  Report Type: Spontaneous
  Country: DK (occurrence: DK)
  Receive Date: 20140310
  Receipt Date: 20140310
  Transmission Date: 20141002
  Serious: Yes (Hospitalization)
  Sender: FDA-Public Use
  Company Number: DK-US-EMD SERONO, INC.-E2B_7273530

PATIENT
  Age: 33 Year
  Sex: Female
  Weight: 50 kg

DRUGS (3)
  1. CETROTIDE (CETRORELIX ACETATE FOR INJECTION) [Suspect]
     Indication: BLOOD FOLLICLE STIMULATING HORMONE
     Dates: start: 20120419
  2. PUREGON /01348901/ [Suspect]
     Indication: BLOOD FOLLICLE STIMULATING HORMONE
     Route: 058
     Dates: start: 20120419
  3. PREGNYL [Suspect]
     Indication: BLOOD FOLLICLE STIMULATING HORMONE
     Route: 058
     Dates: start: 20120419

REACTIONS (6)
  - Cholecystectomy [Recovered/Resolved]
  - Pancreatitis [Unknown]
  - Cholelithiasis [Unknown]
  - Ovarian hyperstimulation syndrome [Recovered/Resolved with Sequelae]
  - Jugular vein thrombosis [Recovered/Resolved with Sequelae]
  - Abdominal pain [Unknown]
